FAERS Safety Report 14325590 (Version 1)
Quarter: 2017Q4

REPORT INFORMATION
  Report Type: Spontaneous
  Country: FR (occurrence: FR)
  Receive Date: 20171226
  Receipt Date: 20171226
  Transmission Date: 20180321
  Serious: Yes (Hospitalization)
  Sender: FDA-Public Use
  Company Number: FR-TEVA-2017-FR-835172

PATIENT
  Age: 23 Year
  Sex: Female

DRUGS (1)
  1. LEELOO [Suspect]
     Active Substance: ETHINYL ESTRADIOL\LEVONORGESTREL
     Route: 065
     Dates: start: 201201

REACTIONS (3)
  - Cerebrovascular accident [Recovered/Resolved with Sequelae]
  - Brain stem infarction [Recovered/Resolved with Sequelae]
  - Cerebellar infarction [Recovered/Resolved with Sequelae]

NARRATIVE: CASE EVENT DATE: 2012
